FAERS Safety Report 14538386 (Version 1)
Quarter: 2018Q1

REPORT INFORMATION
  Report Type: Spontaneous
  Country: US (occurrence: US)
  Receive Date: 20180216
  Receipt Date: 20180216
  Transmission Date: 20180509
  Serious: Yes (Death)
  Sender: FDA-Public Use
  Company Number: US-B.I. PHARMACEUTICALS,INC./RIDGEFIELD-2018-BI-008783

PATIENT
  Sex: Female

DRUGS (6)
  1. STIOLTO RESPIMAT [Suspect]
     Active Substance: OLODATEROL HYDROCHLORIDE\TIOTROPIUM BROMIDE MONOHYDRATE
     Indication: EMPHYSEMA
     Route: 065
  2. COMBIVENT [Suspect]
     Active Substance: ALBUTEROL SULFATE\IPRATROPIUM BROMIDE
     Indication: CHRONIC OBSTRUCTIVE PULMONARY DISEASE
  3. STIOLTO RESPIMAT [Suspect]
     Active Substance: OLODATEROL HYDROCHLORIDE\TIOTROPIUM BROMIDE MONOHYDRATE
     Indication: CHRONIC OBSTRUCTIVE PULMONARY DISEASE
  4. COMBIVENT [Suspect]
     Active Substance: ALBUTEROL SULFATE\IPRATROPIUM BROMIDE
     Indication: EMPHYSEMA
     Dosage: FORM STRENGTH: 20 MCG / 100 MCG
     Route: 065
  5. SPIRIVA [Suspect]
     Active Substance: TIOTROPIUM BROMIDE MONOHYDRATE
     Indication: EMPHYSEMA
     Route: 065
  6. SPIRIVA [Suspect]
     Active Substance: TIOTROPIUM BROMIDE MONOHYDRATE
     Indication: CHRONIC OBSTRUCTIVE PULMONARY DISEASE

REACTIONS (1)
  - Chronic obstructive pulmonary disease [Fatal]
